FAERS Safety Report 15698513 (Version 5)
Quarter: 2021Q1

REPORT INFORMATION
  Report Type: Spontaneous
  Country: BR (occurrence: BR)
  Receive Date: 20181207
  Receipt Date: 20210208
  Transmission Date: 20210419
  Serious: Yes (Other)
  Sender: FDA-Public Use
  Company Number: BR-BIOGEN-2018BI00662370

PATIENT
  Age: 53 Year
  Sex: Female

DRUGS (15)
  1. TECFIDERA [Suspect]
     Active Substance: DIMETHYL FUMARATE
     Dosage: MAINTENANCE DOSE
     Route: 048
     Dates: start: 20181111
  2. TECFIDERA [Suspect]
     Active Substance: DIMETHYL FUMARATE
     Route: 048
     Dates: start: 20200423, end: 20200429
  3. JARDIANCE [Concomitant]
     Active Substance: EMPAGLIFLOZIN
     Indication: DIABETES MELLITUS
     Route: 065
  4. TOUJEO [Concomitant]
     Active Substance: INSULIN GLARGINE
     Indication: DIABETES MELLITUS
     Route: 065
  5. VITAMIN D [Concomitant]
     Active Substance: VITAMIN D NOS
     Indication: PRODUCT USED FOR UNKNOWN INDICATION
     Route: 065
  6. PLENANCE [Concomitant]
     Active Substance: ROSUVASTATIN
     Route: 065
  7. INSULIN [Concomitant]
     Active Substance: INSULIN NOS
     Indication: PRODUCT USED FOR UNKNOWN INDICATION
     Route: 065
  8. PLENANCE [Concomitant]
     Active Substance: ROSUVASTATIN
     Indication: BLOOD CHOLESTEROL ABNORMAL
     Route: 065
  9. APIDRA [Concomitant]
     Active Substance: INSULIN GLULISINE
     Indication: DIABETES MELLITUS
     Dosage: 5?4?2
     Route: 050
  10. TECFIDERA [Suspect]
     Active Substance: DIMETHYL FUMARATE
     Indication: MULTIPLE SCLEROSIS
     Dosage: STARTING DOSE
     Route: 050
     Dates: start: 20181111
  11. TECFIDERA [Suspect]
     Active Substance: DIMETHYL FUMARATE
     Route: 048
     Dates: start: 20201110
  12. TECFIDERA [Suspect]
     Active Substance: DIMETHYL FUMARATE
     Route: 048
     Dates: start: 20200430
  13. TECFIDERA [Suspect]
     Active Substance: DIMETHYL FUMARATE
     Route: 048
     Dates: start: 201811, end: 201811
  14. TECFIDERA [Suspect]
     Active Substance: DIMETHYL FUMARATE
     Route: 048
     Dates: start: 2018
  15. JARDIANCE [Concomitant]
     Active Substance: EMPAGLIFLOZIN
     Indication: DIABETES MELLITUS
     Route: 065

REACTIONS (19)
  - Diabetes mellitus [Unknown]
  - Throat irritation [Unknown]
  - Pruritus [Unknown]
  - Burning sensation [Recovered/Resolved]
  - Leukopenia [Not Recovered/Not Resolved]
  - Prescribed underdose [Not Recovered/Not Resolved]
  - Anxiety [Unknown]
  - Nasal discomfort [Unknown]
  - Musculoskeletal chest pain [Unknown]
  - Dyspepsia [Recovered/Resolved]
  - Oropharyngeal pain [Recovered/Resolved]
  - Constipation [Not Recovered/Not Resolved]
  - Skin discolouration [Recovered/Resolved]
  - Blood glucose increased [Unknown]
  - Gastrooesophageal reflux disease [Unknown]
  - Abdominal discomfort [Recovered/Resolved]
  - Hot flush [Recovered/Resolved]
  - Dysphonia [Recovered/Resolved]
  - Lymphopenia [Not Recovered/Not Resolved]

NARRATIVE: CASE EVENT DATE: 201811
